FAERS Safety Report 17538327 (Version 1)
Quarter: 2020Q1

REPORT INFORMATION
  Report Type: Spontaneous
  Country: US (occurrence: US)
  Receive Date: 20200313
  Receipt Date: 20200313
  Transmission Date: 20200409
  Serious: Yes (Other)
  Sender: FDA-Public Use
  Company Number: US-TOLMAR, INC.-20US020636

PATIENT
  Age: 8 Year
  Sex: Male

DRUGS (1)
  1. METRONIDAZOLE. [Suspect]
     Active Substance: METRONIDAZOLE
     Indication: PROPHYLAXIS AGAINST TRANSPLANT REJECTION
     Dosage: 1378.8 GRAM
     Route: 065

REACTIONS (1)
  - Neurotoxicity [Recovered/Resolved]
